FAERS Safety Report 14168063 (Version 2)
Quarter: 2018Q2

REPORT INFORMATION
  Report Type: Spontaneous
  Country: US (occurrence: US)
  Receive Date: 20171107
  Receipt Date: 20180515
  Transmission Date: 20180711
  Serious: No
  Sender: FDA-Public Use
  Company Number: US-SA-2017SA165580

PATIENT
  Sex: Female

DRUGS (8)
  1. TOUJEO [Suspect]
     Active Substance: INSULIN GLARGINE
     Route: 051
  2. BYDUREON [Concomitant]
     Active Substance: EXENATIDE
     Route: 065
  3. TOUJEO [Suspect]
     Active Substance: INSULIN GLARGINE
     Dosage: DOSE IS UPTO 36UNITS
     Route: 051
  4. LANTUS [Concomitant]
     Active Substance: INSULIN GLARGINE
     Route: 065
  5. LANTUS [Concomitant]
     Active Substance: INSULIN GLARGINE
     Dosage: DOSE STEADILY INCREASED UP TO 36 UNITS BID
     Route: 065
  6. SOLOSTAR [Suspect]
     Active Substance: DEVICE
  7. GLIPIZIDE. [Concomitant]
     Active Substance: GLIPIZIDE
     Route: 065
  8. SOLOSTAR [Suspect]
     Active Substance: DEVICE

REACTIONS (1)
  - Ill-defined disorder [Unknown]
